FAERS Safety Report 20047146 (Version 2)
Quarter: 2021Q4

REPORT INFORMATION
  Report Type: Spontaneous
  Country: CH (occurrence: CH)
  Receive Date: 20211109
  Receipt Date: 20211221
  Transmission Date: 20220303
  Serious: Yes (Other)
  Sender: FDA-Public Use
  Company Number: CH-SUN PHARMACEUTICAL INDUSTRIES LTD-2021RR-316976

PATIENT
  Age: 76 Year
  Sex: Male

DRUGS (1)
  1. NOREPINEPHRINE [Suspect]
     Active Substance: NOREPINEPHRINE
     Indication: Haemophagocytic lymphohistiocytosis
     Dosage: HIGH DOSE
     Route: 065

REACTIONS (1)
  - Condition aggravated [Unknown]
